FAERS Safety Report 7899823-6 (Version None)
Quarter: 2011Q4

REPORT INFORMATION
  Report Type: 
  Country: None (occurrence: None)
  Receive Date: 20111107
  Receipt Date: 20110921
  Transmission Date: 20120403
  Serious: No
  Sender: FDA-Public Use
  Company Number: US-AMGEN-USASP2011046286

PATIENT
  Age: 67 Year
  Sex: Female

DRUGS (1)
  1. ENBREL [Suspect]
     Indication: PSORIASIS
     Dosage: 50 MG, 2 TIMES/WK
     Route: 058
     Dates: start: 20110517

REACTIONS (5)
  - UPPER RESPIRATORY TRACT CONGESTION [None]
  - EAR DISCOMFORT [None]
  - PRODUCTIVE COUGH [None]
  - MALAISE [None]
  - NASOPHARYNGITIS [None]
